FAERS Safety Report 12056985 (Version 2)
Quarter: 2016Q1

REPORT INFORMATION
  Report Type: Spontaneous
  Country: JP (occurrence: JP)
  Receive Date: 20160210
  Receipt Date: 20160303
  Transmission Date: 20160526
  Serious: Yes (Hospitalization, Disabling)
  Sender: FDA-Public Use
  Company Number: JP-ROCHE-1709006

PATIENT
  Age: 60 Year
  Sex: Male
  Weight: 48 kg

DRUGS (3)
  1. ELPLAT [Concomitant]
     Active Substance: OXALIPLATIN
     Indication: COLON CANCER
     Dosage: DOSAGE IS UNCERTAIN.
     Route: 041
  2. XELODA [Suspect]
     Active Substance: CAPECITABINE
     Indication: COLON CANCER
     Dosage: 2 WEEKS ADMINISTRATION FOLLOWED BY 1 WEEK REST
     Route: 048
     Dates: start: 20151222, end: 20160127
  3. AVASTIN [Suspect]
     Active Substance: BEVACIZUMAB
     Indication: COLON CANCER
     Dosage: DATE OF MOST RECENT DOSE: 13/JAN/2016
     Route: 041
     Dates: start: 20151222, end: 20160113

REACTIONS (2)
  - Tumour perforation [Recovered/Resolved with Sequelae]
  - Cellulitis [Unknown]

NARRATIVE: CASE EVENT DATE: 20160203
